FAERS Safety Report 5506799-5 (Version None)
Quarter: 2007Q4

REPORT INFORMATION
  Report Type: 
  Country: None (occurrence: None)
  Receive Date: 20071105
  Receipt Date: 20071024
  Transmission Date: 20080405
  Serious: Yes (Other)
  Sender: FDA-Public Use
  Company Number: BR-PFIZER INC-2007090717

PATIENT
  Sex: Female
  Weight: 56 kg

DRUGS (5)
  1. LIPITOR [Suspect]
     Indication: BLOOD CHOLESTEROL INCREASED
     Route: 048
  2. LIPITOR [Suspect]
     Indication: BLOOD TRIGLYCERIDES
  3. BUSCOPAN [Suspect]
  4. CARDIZEM CD [Concomitant]
     Route: 048
  5. PANTOPRAZOLE SODIUM [Concomitant]

REACTIONS (6)
  - FLATULENCE [None]
  - HEPATIC STEATOSIS [None]
  - NEPHROLITHIASIS [None]
  - PAIN [None]
  - RENAL COLIC [None]
  - WEIGHT DECREASED [None]
